FAERS Safety Report 6801443-9 (Version None)
Quarter: 2010Q2

REPORT INFORMATION
  Report Type: 
  Country: None (occurrence: None)
  Receive Date: 20100629
  Receipt Date: 20100622
  Transmission Date: 20101027
  Serious: Yes (Hospitalization, Other)
  Sender: FDA-Public Use
  Company Number: ZA-SANOFI-AVENTIS-200912803GDDC

PATIENT
  Sex: Female
  Weight: 3.2 kg

DRUGS (2)
  1. INSULIN GLARGINE [Suspect]
     Indication: DIABETIC RELATIVE
     Dosage: DOSE:32 UNIT(S)
     Route: 064
     Dates: start: 20080830
  2. INSULIN GLULISINE [Suspect]
     Indication: DIABETIC RELATIVE
     Dosage: DOSE:12 UNIT(S)
     Route: 064
     Dates: start: 20080830

REACTIONS (2)
  - DRUG EXPOSURE DURING PREGNANCY [None]
  - PREMATURE BABY [None]
